FAERS Safety Report 6348034-4 (Version None)
Quarter: 2009Q3

REPORT INFORMATION
  Report Type: 
  Country: None (occurrence: None)
  Receive Date: 20090910
  Receipt Date: 20090831
  Transmission Date: 20100115
  Serious: Yes (Hospitalization)
  Sender: FDA-Public Use
  Company Number: DE-ABBOTT-09P-062-0594686-00

PATIENT
  Sex: Male
  Weight: 99 kg

DRUGS (3)
  1. HUMIRA [Suspect]
     Indication: COLITIS ULCERATIVE
     Route: 058
     Dates: start: 20080708, end: 20090625
  2. SALOFALK [Concomitant]
     Indication: COLITIS ULCERATIVE
     Dates: start: 20010601
  3. FERROUS SULFATE TAB [Concomitant]
     Indication: IRON DEFICIENCY
     Dates: start: 20090128

REACTIONS (3)
  - ANAEMIA [None]
  - DIARRHOEA [None]
  - PYREXIA [None]
